FAERS Safety Report 5038038-6 (Version None)
Quarter: 2006Q2

REPORT INFORMATION
  Report Type: 
  Country: None (occurrence: None)
  Receive Date: 20060601
  Receipt Date: 20060204
  Transmission Date: 20061013
  Serious: No
  Sender: FDA-Public Use
  Company Number: 2006PV008137

PATIENT
  Age: 61 Year
  Sex: Male
  Weight: 122.4712 kg

DRUGS (7)
  1. BYETTA [Suspect]
     Indication: DIABETES MELLITUS NON-INSULIN-DEPENDENT
     Dosage: 10 MCG;BID;SC
     Route: 058
     Dates: start: 20050801
  2. GLUCOPHAGE [Concomitant]
  3. MAXIUM [Concomitant]
  4. NIASPAN [Concomitant]
  5. ALTACE [Concomitant]
  6. SPIRONOLACTONE [Concomitant]
  7. VYTORIN [Concomitant]

REACTIONS (1)
  - RASH PRURITIC [None]
